FAERS Safety Report 4992591-7 (Version None)
Quarter: 2006Q1

REPORT INFORMATION
  Report Type: 
  Country: None (occurrence: None)
  Receive Date: 20060314
  Receipt Date: 20051121
  Transmission Date: 20060701
  Serious: No
  Sender: FDA-Public Use
  Company Number: 2005-02421

PATIENT
  Age: 63 Year
  Sex: Male
  Weight: 88.4 kg

DRUGS (1)
  1. VELCADE (BORTEZPMIB) INJECTION [Suspect]
     Indication: MULTIPLE MYELOMA
     Dates: start: 20050401

REACTIONS (1)
  - NEUROPATHY PERIPHERAL [None]
